FAERS Safety Report 6922973-5 (Version None)
Quarter: 2010Q3

REPORT INFORMATION
  Report Type: 
  Country: None (occurrence: None)
  Receive Date: 20100813
  Receipt Date: 20100803
  Transmission Date: 20110219
  Serious: Yes (Hospitalization)
  Sender: FDA-Public Use
  Company Number: US-ABBOTT-10P-163-0661268-00

PATIENT
  Sex: Male

DRUGS (8)
  1. HUMIRA [Suspect]
     Indication: CROHN'S DISEASE
  2. REMICADE [Suspect]
     Indication: CROHN'S DISEASE
     Route: 042
     Dates: start: 20020501, end: 20081203
  3. REMICADE [Suspect]
     Dates: start: 20020501
  4. MERCAPTOPURINE [Suspect]
     Indication: CROHN'S DISEASE
  5. CORTICOSTEROID NOS [Concomitant]
     Indication: PRODUCT USED FOR UNKNOWN INDICATION
  6. ANTIHISTAMINES [Concomitant]
     Indication: PREMEDICATION
  7. ACETAMINOPHEN [Concomitant]
     Indication: PREMEDICATION
  8. MESALAZINE [Concomitant]
     Indication: PRODUCT USED FOR UNKNOWN INDICATION

REACTIONS (2)
  - RENAL CELL CARCINOMA [None]
  - RENAL MASS [None]
